FAERS Safety Report 16366005 (Version 1)
Quarter: 2019Q2

REPORT INFORMATION
  Report Type: Spontaneous
  Country: US (occurrence: US)
  Receive Date: 20190529
  Receipt Date: 20190529
  Transmission Date: 20190711
  Serious: Yes (Hospitalization)
  Sender: FDA-Public Use
  Company Number: US-PERRIGO-19US006254

PATIENT
  Age: 35 Year
  Sex: Female

DRUGS (1)
  1. NAPROXEN SODIUM. [Suspect]
     Active Substance: NAPROXEN SODIUM
     Indication: INTENTIONAL OVERDOSE
     Dosage: 30 G, SINGLE
     Route: 048

REACTIONS (4)
  - Toxic encephalopathy [Recovered/Resolved]
  - Metabolic acidosis [Recovered/Resolved]
  - Seizure [Recovered/Resolved]
  - Intentional overdose [Recovered/Resolved]
